FAERS Safety Report 13497995 (Version 5)
Quarter: 2017Q3

REPORT INFORMATION
  Report Type: Report from Study
  Country: DE (occurrence: DE)
  Receive Date: 20170428
  Receipt Date: 20170714
  Transmission Date: 20171127
  Serious: Yes (Death, Other)
  Sender: FDA-Public Use
  Company Number: DE-GILEAD-2017-0270030

PATIENT
  Age: 63 Year
  Sex: Male
  Weight: 103 kg

DRUGS (14)
  1. TIRABRUTINIB [Suspect]
     Active Substance: TIRABRUTINIB
     Indication: CHRONIC LYMPHOCYTIC LEUKAEMIA
     Dosage: 80 MG, QD
     Route: 048
     Dates: start: 20170313, end: 20170426
  2. PANTOZOL [Concomitant]
     Active Substance: PANTOPRAZOLE SODIUM
     Indication: GASTROOESOPHAGEAL REFLUX DISEASE
     Dosage: UNK
     Route: 048
     Dates: start: 201309
  3. ALLOPURINOL. [Concomitant]
     Active Substance: ALLOPURINOL
     Indication: HYPERURICAEMIA
     Route: 048
     Dates: start: 20170403
  4. VERTIGOHEEL                        /07414001/ [Concomitant]
     Indication: DIZZINESS
     Dosage: UNK
     Route: 048
     Dates: start: 201309
  5. ACIC                               /00587301/ [Concomitant]
     Indication: PROPHYLAXIS
     Route: 048
     Dates: start: 20170313
  6. EUTHYROX [Concomitant]
     Active Substance: LEVOTHYROXINE SODIUM
     Indication: HYPOTHYROIDISM
     Dosage: UNK
     Route: 048
     Dates: start: 201309
  7. IDELALISIB [Suspect]
     Active Substance: IDELALISIB
     Indication: CHRONIC LYMPHOCYTIC LEUKAEMIA
     Dosage: 100 MG, QD
     Route: 048
     Dates: start: 20170313, end: 20170426
  8. LEGALON [Concomitant]
     Active Substance: MILK THISTLE
     Indication: PROPHYLAXIS
     Dosage: UNK
     Route: 048
     Dates: start: 201309
  9. GINGIUM [Concomitant]
     Active Substance: GINKGO
     Indication: MEMORY IMPAIRMENT
     Route: 048
     Dates: start: 20130909, end: 20170411
  10. ATORVASTIN [Concomitant]
     Active Substance: ATORVASTATIN
     Indication: HYPERCHOLESTEROLAEMIA
     Dosage: UNK
     Route: 048
     Dates: start: 201309
  11. PARACETAMOL [Concomitant]
     Active Substance: ACETAMINOPHEN
     Indication: FEBRILE INFECTION
     Route: 048
     Dates: start: 20170424
  12. BISOPROLOL [Concomitant]
     Active Substance: BISOPROLOL
     Indication: TACHYCARDIA
     Route: 048
     Dates: start: 20170411
  13. COTRIM FORTE [Concomitant]
     Active Substance: SULFAMETHOXAZOLE\TRIMETHOPRIM
     Indication: INFECTION PROPHYLAXIS
     Route: 048
     Dates: start: 20170313
  14. PROSTAGUTT UNO [Concomitant]
     Indication: PROSTATIC DISORDER
     Dosage: UNK
     Route: 048
     Dates: start: 201309

REACTIONS (1)
  - Infarction [Fatal]

NARRATIVE: CASE EVENT DATE: 20170426
